FAERS Safety Report 7773616-2 (Version None)
Quarter: 2011Q3

REPORT INFORMATION
  Report Type: 
  Country: None (occurrence: None)
  Receive Date: 20110923
  Receipt Date: 20110915
  Transmission Date: 20111222
  Serious: Yes (Hospitalization)
  Sender: FDA-Public Use
  Company Number: US-BIOGENIDEC-2011BI013199

PATIENT
  Age: 46 Year
  Sex: Male

DRUGS (1)
  1. AVONEX [Suspect]
     Indication: MULTIPLE SCLEROSIS
     Route: 030
     Dates: start: 20070921

REACTIONS (9)
  - LOCALISED INFECTION [None]
  - LOSS OF CONSCIOUSNESS [None]
  - OSTEOMYELITIS [None]
  - POOR PERIPHERAL CIRCULATION [None]
  - ANAEMIA [None]
  - CONVULSION [None]
  - SEPSIS [None]
  - VIRAL INFECTION [None]
  - FALL [None]
